FAERS Safety Report 17600166 (Version 1)
Quarter: 2020Q1

REPORT INFORMATION
  Report Type: Spontaneous
  Country: US (occurrence: US)
  Receive Date: 20200330
  Receipt Date: 20200330
  Transmission Date: 20200409
  Serious: No
  Sender: FDA-Public Use
  Company Number: US-PFIZER INC-2016570932

PATIENT
  Age: 74 Year
  Sex: Male

DRUGS (11)
  1. LYRICA [Suspect]
     Active Substance: PREGABALIN
     Dosage: 150 MG, 3X/DAY (ONE CAPSULE THREE TIMES A DAILY)
     Route: 048
     Dates: start: 20161130
  2. LANTUS [Concomitant]
     Active Substance: INSULIN GLARGINE
     Dosage: 40 IU, DAILY (EVERY DAY INCREASE BY 3 UNITS EVERY 3 DAYS FOR FASTING SUGARS OVER 120)
     Route: 058
     Dates: start: 20160928
  3. ELAVIL [Concomitant]
     Active Substance: AMITRIPTYLINE HYDROCHLORIDE
     Dosage: 50 MG, 1X/DAY (TAKE 1 TABLET BY MOUTH ONCE DAILY IN THE EVENING)
     Route: 048
     Dates: start: 20160830
  4. NORVASC [Concomitant]
     Active Substance: AMLODIPINE BESYLATE
     Dosage: 10 MG, DAILY (2 DAILY)
     Dates: start: 20110825
  5. ZESTORETIC [Concomitant]
     Active Substance: HYDROCHLOROTHIAZIDE\LISINOPRIL
     Dosage: UNK (20-12.5 MG)
     Dates: start: 20151130
  6. ASPIRIN. [Concomitant]
     Active Substance: ASPIRIN
     Dosage: 81 MG, 2X/DAY (AKE 162 MG BY MOUTH DAILY)
     Route: 048
  7. PRAVACHOL [Concomitant]
     Active Substance: PRAVASTATIN SODIUM
     Dosage: 20 MG, DAILY (TAKE 20 MG BY MOUTH NIGHTLY)
     Route: 048
     Dates: start: 20141019
  8. VITAMIN B12 [Concomitant]
     Active Substance: CYANOCOBALAMIN
     Dosage: 1000 UG, 2X/DAY (TAKE 2TABLETS BY MOUTH DAILY)
     Route: 048
     Dates: start: 20151204
  9. PRINZIDE [Concomitant]
     Active Substance: HYDROCHLOROTHIAZIDE\LISINOPRIL
     Dosage: UNK (20-12.5 MG)
     Dates: start: 20151130
  10. LYRICA [Suspect]
     Active Substance: PREGABALIN
     Indication: PAIN
     Dosage: 150 MG, 3X/DAY (THREE TIMES A DAILY)
     Route: 048
     Dates: start: 20161031
  11. GLUCOPHAGE [Concomitant]
     Active Substance: METFORMIN HYDROCHLORIDE
     Dosage: 500 MG, 2X/DAY (TAKE ONE HALF TABLET BY MOUTH TWICE DAILY TAKE WITH BREAKFAST AND DINNER)
     Route: 048
     Dates: start: 20160928

REACTIONS (1)
  - Hypoacusis [Unknown]
